FAERS Safety Report 9261927 (Version 1)
Quarter: 2013Q2

REPORT INFORMATION
  Report Type: Spontaneous
  Country: ZA (occurrence: ZA)
  Receive Date: 20130429
  Receipt Date: 20130429
  Transmission Date: 20140414
  Serious: Yes (Life-Threatening, Hospitalization)
  Sender: FDA-Public Use
  Company Number: ZA-B.I. PHARMACEUTICALS,INC./RIDGEFIELD-2013-AP-00340ZA

PATIENT
  Age: 83 Year
  Sex: Male

DRUGS (4)
  1. PRADAXA [Suspect]
     Indication: THROMBOSIS PROPHYLAXIS
     Dosage: 220 MG
     Route: 048
     Dates: start: 20130420, end: 20130424
  2. PARIET [Concomitant]
  3. PURICOS [Concomitant]
  4. ENOXAPARIN [Concomitant]

REACTIONS (1)
  - Pulmonary embolism [Recovered/Resolved]
